FAERS Safety Report 20722012 (Version 1)
Quarter: 2022Q2

REPORT INFORMATION
  Report Type: Spontaneous
  Country: US (occurrence: US)
  Receive Date: 20220418
  Receipt Date: 20220418
  Transmission Date: 20220721
  Serious: No
  Sender: FDA-Public Use
  Company Number: US-BAYER-2022A055103

PATIENT
  Age: 63 Year

DRUGS (1)
  1. MIRALAX [Suspect]
     Active Substance: POLYETHYLENE GLYCOL 3350
     Dosage: 1 CAP FULL AND 8 GLASSES OF WATER
     Route: 048

REACTIONS (1)
  - Drug ineffective [Unknown]
